FAERS Safety Report 5272907-7 (Version None)
Quarter: 2007Q1

REPORT INFORMATION
  Report Type: 
  Country: None (occurrence: None)
  Receive Date: 20061219
  Receipt Date: 20060912
  Transmission Date: 20070707
  Serious: Yes (Hospitalization, Other)
  Sender: FDA-Public Use
  Company Number: US-JNJFOC-20060903178

PATIENT
  Age: 24 Year
  Sex: Female

DRUGS (4)
  1. ORTHO EVRA [Suspect]
     Indication: DRUG USE FOR UNKNOWN INDICATION
     Dosage: TRANSDERMAL
     Route: 062
     Dates: start: 20031001, end: 20040401
  2. ORTHO EVRA [Suspect]
     Indication: DRUG USE FOR UNKNOWN INDICATION
     Dosage: TRANSDERMAL
     Route: 062
     Dates: start: 20050301, end: 20050501
  3. SPIRIVA [Suspect]
     Indication: RESTRICTIVE PULMONARY DISEASE
     Dosage: INHALATION
     Route: 055
     Dates: start: 20050701, end: 20050701
  4. ADVAIR DISKUS 100/50 [Suspect]
     Indication: RESTRICTIVE PULMONARY DISEASE
     Dosage: INHALATION
     Route: 055
     Dates: start: 20050701, end: 20050701

REACTIONS (1)
  - PULMONARY EMBOLISM [None]
